FAERS Safety Report 13962872 (Version 1)
Quarter: 2017Q3

REPORT INFORMATION
  Report Type: Spontaneous
  Country: US (occurrence: None)
  Receive Date: 20170912
  Receipt Date: 20170912
  Transmission Date: 20171128
  Serious: No
  Sender: FDA-Public Use
  Company Number: None

PATIENT
  Sex: Male
  Weight: 88.45 kg

DRUGS (2)
  1. OTREXUP [Suspect]
     Active Substance: METHOTREXATE
     Indication: RHEUMATOID ARTHRITIS
     Route: 058
     Dates: start: 201607
  2. XELJANZ XR [Suspect]
     Active Substance: TOFACITINIB CITRATE
     Route: 048
     Dates: start: 201708

REACTIONS (1)
  - Viral upper respiratory tract infection [None]
